FAERS Safety Report 6065765-4 (Version None)
Quarter: 2009Q1

REPORT INFORMATION
  Report Type: 
  Country: None (occurrence: None)
  Receive Date: 20090204
  Receipt Date: 20090127
  Transmission Date: 20090719
  Serious: Yes (Other)
  Sender: FDA-Public Use
  Company Number: KR-GILEAD-2009-0020051

PATIENT
  Age: 49 Year
  Sex: Male

DRUGS (2)
  1. HEPSERA [Suspect]
     Indication: HEPATIC CIRRHOSIS
  2. HEPSERA [Suspect]
     Indication: HEPATITIS B

REACTIONS (3)
  - ALANINE AMINOTRANSFERASE INCREASED [None]
  - GENOTYPE DRUG RESISTANCE TEST POSITIVE [None]
  - NO THERAPEUTIC RESPONSE [None]
